FAERS Safety Report 5820637-2 (Version None)
Quarter: 2008Q3

REPORT INFORMATION
  Report Type: 
  Country: None (occurrence: None)
  Receive Date: 20080724
  Receipt Date: 20071220
  Transmission Date: 20090109
  Serious: No
  Sender: FDA-Public Use
  Company Number: A0700000A

PATIENT
  Age: 38 Year
  Sex: Female

DRUGS (3)
  1. AVANDIA [Suspect]
     Dosage: 8MG PER DAY
     Route: 048
     Dates: start: 20050401
  2. NORCO [Concomitant]
  3. TEMAZEPAM [Concomitant]

REACTIONS (2)
  - DENTAL CARIES [None]
  - TOOTH LOSS [None]
